FAERS Safety Report 18672735 (Version 3)
Quarter: 2021Q1

REPORT INFORMATION
  Report Type: Spontaneous
  Country: AU (occurrence: AU)
  Receive Date: 20201228
  Receipt Date: 20210122
  Transmission Date: 20210419
  Serious: Yes (Hospitalization, Other)
  Sender: FDA-Public Use
  Company Number: AU-MYLANLABS-2020M1104633

PATIENT
  Age: 50 Year
  Sex: Male

DRUGS (6)
  1. CLOZARIL [Suspect]
     Active Substance: CLOZAPINE
     Indication: SCHIZOPHRENIA
     Dosage: UNK
     Route: 048
     Dates: start: 20020829, end: 202009
  2. LURASIDONE [Concomitant]
     Active Substance: LURASIDONE
     Dosage: UNK
     Dates: end: 20201224
  3. OLANZAPINE. [Concomitant]
     Active Substance: OLANZAPINE
     Dosage: 10 MILLIGRAM, BID
  4. SODIUM VALPROATE [Concomitant]
     Active Substance: VALPROATE SODIUM
     Dosage: UNK, BID (500MG MORNING, 1500 MG NIGHT)
  5. PERINDOPRIL [Concomitant]
     Active Substance: PERINDOPRIL
     Dosage: 2 MILLIGRAM, QD
  6. ZUCLOPENTHIXOL DECANOATE [Concomitant]
     Active Substance: ZUCLOPENTHIXOL DECANOATE
     Dosage: 150 MILLIGRAM, Q28D
     Dates: start: 20201221

REACTIONS (2)
  - Schizophrenia [Recovering/Resolving]
  - Cardiac dysfunction [Unknown]

NARRATIVE: CASE EVENT DATE: 202009
